FAERS Safety Report 10236777 (Version 1)
Quarter: 2014Q2

REPORT INFORMATION
  Report Type: Report from Study
  Country: NL (occurrence: NL)
  Receive Date: 20140613
  Receipt Date: 20140613
  Transmission Date: 20141212
  Serious: Yes (Hospitalization)
  Sender: FDA-Public Use
  Company Number: NL-GLAXOSMITHKLINE-B1003437A

PATIENT
  Sex: 0

DRUGS (5)
  1. DABRAFENIB [Suspect]
     Indication: METASTATIC MALIGNANT MELANOMA
  2. TRAMETINIB [Suspect]
     Indication: METASTATIC MALIGNANT MELANOMA
  3. PARACETAMOL [Concomitant]
     Dates: start: 20140603
  4. ACETYLSALICYLIC ACID [Concomitant]
     Dosage: 100MG AS REQUIRED
  5. MACROGOL [Concomitant]

REACTIONS (2)
  - Pyrexia [Not Recovered/Not Resolved]
  - Delirium [Not Recovered/Not Resolved]
